FAERS Safety Report 5818316-0 (Version None)
Quarter: 2008Q3

REPORT INFORMATION
  Report Type: 
  Country: None (occurrence: None)
  Receive Date: 20080722
  Receipt Date: 20080710
  Transmission Date: 20090109
  Serious: Yes (Life-Threatening, Hospitalization, Other)
  Sender: FDA-Public Use
  Company Number: GR-PFIZER INC-2008057422

PATIENT
  Age: 52 Year
  Sex: Male

DRUGS (4)
  1. SERTRALINE [Suspect]
     Indication: PSYCHOTIC DISORDER
     Dosage: DAILY DOSE:50MG
     Route: 048
  2. RISPERIDONE [Suspect]
     Indication: PSYCHOTIC DISORDER
     Dosage: DAILY DOSE:5MG
  3. MIRTAZAPINE [Suspect]
     Indication: PSYCHOTIC DISORDER
     Dosage: DAILY DOSE:60MG
  4. QUETIAPINE FUMARATE [Concomitant]

REACTIONS (2)
  - NEUROLEPTIC MALIGNANT SYNDROME [None]
  - RENAL FAILURE ACUTE [None]
